FAERS Safety Report 7366928-8 (Version None)
Quarter: 2011Q1

REPORT INFORMATION
  Report Type: 
  Country: None (occurrence: None)
  Receive Date: 20110322
  Receipt Date: 20110316
  Transmission Date: 20110831
  Serious: Yes (Other)
  Sender: FDA-Public Use
  Company Number: B0706786A

PATIENT
  Sex: Male
  Weight: 65 kg

DRUGS (17)
  1. SOLDEM 3A [Concomitant]
     Route: 042
     Dates: start: 20050105, end: 20050126
  2. BAKTAR [Concomitant]
     Dosage: 1IUAX PER DAY
     Route: 048
     Dates: start: 20050105
  3. CYMERIN [Suspect]
     Indication: STEM CELL TRANSPLANT
     Dosage: 530MGM2 PER DAY
     Route: 042
     Dates: start: 20050105, end: 20050105
  4. KYTRIL [Concomitant]
     Dosage: 6MG PER DAY
     Dates: start: 20050105, end: 20050110
  5. MEYLON [Concomitant]
     Dosage: 40ML PER DAY
     Route: 042
     Dates: start: 20050105, end: 20050110
  6. BIOFERMIN R [Concomitant]
     Dosage: 3IUAX PER DAY
     Route: 048
     Dates: start: 20050105
  7. DIFLUCAN [Concomitant]
     Dosage: 400MG PER DAY
     Route: 048
     Dates: start: 20050105
  8. VALTREX [Concomitant]
     Dosage: 500MG PER DAY
     Route: 048
     Dates: start: 20050105
  9. NEUTROGIN [Concomitant]
     Dosage: 250MCG PER DAY
     Dates: start: 20050120, end: 20050126
  10. MAGNESIUM OXIDE [Concomitant]
     Dosage: 2G PER DAY
     Route: 048
     Dates: start: 20050105, end: 20050206
  11. VEPESID [Suspect]
     Indication: STEM CELL TRANSPLANT
     Dosage: 350MGM2 PER DAY
     Route: 042
     Dates: start: 20050106, end: 20050109
  12. ZANTAC [Concomitant]
     Dosage: 100MG PER DAY
     Route: 042
     Dates: start: 20050105, end: 20050126
  13. ALKERAN [Suspect]
     Indication: STEM CELL TRANSPLANT
     Dosage: 140MGM2 PER DAY
     Route: 042
     Dates: start: 20050110, end: 20050110
  14. CYLOCIDE [Suspect]
     Indication: STEM CELL TRANSPLANT
     Dosage: 350MGM2 PER DAY
     Route: 042
     Dates: start: 20050106, end: 20050109
  15. SOLITA T [Concomitant]
     Dosage: 1000ML PER DAY
     Route: 042
     Dates: start: 20050105, end: 20050110
  16. HEPARIN SODIUM [Concomitant]
     Dosage: 5IU3 PER DAY
     Dates: start: 20050105, end: 20050126
  17. MARZULENE-S [Concomitant]
     Dosage: 1.5G PER DAY
     Route: 048
     Dates: start: 20050105

REACTIONS (1)
  - C-REACTIVE PROTEIN INCREASED [None]
